FAERS Safety Report 20091894 (Version 1)
Quarter: 2021Q4

REPORT INFORMATION
  Report Type: Spontaneous
  Country: US (occurrence: None)
  Receive Date: 20211119
  Receipt Date: 20211119
  Transmission Date: 20220303
  Serious: No
  Sender: FDA-Public Use
  Company Number: None

PATIENT
  Age: 70 Year
  Sex: Female
  Weight: 58 kg

DRUGS (14)
  1. CAPECITABINE [Suspect]
     Active Substance: CAPECITABINE
     Indication: Breast cancer
     Dosage: OTHER FREQUENCY : BID FOR 14/21 DAYS;?
     Route: 048
     Dates: start: 20210719
  2. CAPECITABINE [Suspect]
     Active Substance: CAPECITABINE
     Indication: Breast cancer
     Dosage: OTHER FREQUENCY : BID FOR 14/21 DAYS;?
     Route: 048
     Dates: start: 20210719
  3. ACETAMINOPHEN [Concomitant]
     Active Substance: ACETAMINOPHEN
  4. CBD Oil cream [Concomitant]
  5. Celebrex 50mg [Concomitant]
  6. COLACE [Concomitant]
     Active Substance: DOCUSATE SODIUM
  7. Fentanyl 12mcg/hr [Concomitant]
  8. LEVOTHYROXINE [Concomitant]
     Active Substance: LEVOTHYROXINE
  9. METHYLPHENIDATE [Concomitant]
     Active Substance: METHYLPHENIDATE
  10. OXYCODONE [Concomitant]
     Active Substance: OXYCODONE
  11. Senna Tea Liquid [Concomitant]
  12. VOLTAREN [Concomitant]
     Active Substance: DICLOFENAC SODIUM
  13. Caffeine 200mg [Concomitant]
  14. Emergen-C Vitamin C [Concomitant]

REACTIONS (1)
  - Somnolence [None]

NARRATIVE: CASE EVENT DATE: 20211118
